FAERS Safety Report 4472098-6 (Version None)
Quarter: 2004Q4

REPORT INFORMATION
  Report Type: 
  Country: None (occurrence: None)
  Receive Date: 20041008
  Receipt Date: 20040928
  Transmission Date: 20050328
  Serious: Yes (Hospitalization, Other)
  Sender: FDA-Public Use
  Company Number: 2004071938

PATIENT
  Age: 26 Year
  Sex: Male
  Weight: 131.5431 kg

DRUGS (1)
  1. NEURONTIN [Suspect]
     Indication: CONVULSION
     Dosage: 3200 MG (400 MG, 8 IN 1 D), ORAL
     Route: 048
     Dates: start: 19960101

REACTIONS (5)
  - BRAIN OEDEMA [None]
  - CENTRAL NERVOUS SYSTEM INFECTION [None]
  - HEAD DEFORMITY [None]
  - NERVOUS SYSTEM DISORDER [None]
  - POST PROCEDURAL COMPLICATION [None]
